FAERS Safety Report 12473081 (Version 2)
Quarter: 2017Q2

REPORT INFORMATION
  Report Type: Spontaneous
  Country: DK (occurrence: DK)
  Receive Date: 20160616
  Receipt Date: 20170523
  Transmission Date: 20170830
  Serious: Yes (Hospitalization)
  Sender: FDA-Public Use
  Company Number: DK-PFIZER INC-2016292358

PATIENT
  Age: 54 Year
  Sex: Female

DRUGS (16)
  1. PANTOPRAZOLE [Concomitant]
     Active Substance: PANTOPRAZOLE
     Dosage: 40 MG, 2X/DAY
  2. LYRICA [Suspect]
     Active Substance: PREGABALIN
     Indication: NEURALGIA
     Dosage: 2X/DAY (4 CAPSULES IN THE MORNING (100 MG) AND 6 CAPSULES IN THE EVENING (150 MG))
     Route: 048
     Dates: start: 20121120
  3. OXYNORM [Concomitant]
     Active Substance: OXYCODONE HYDROCHLORIDE
     Indication: PAIN
     Dosage: 5 MG, AS NEEDED, MAX 1XDAILY
  4. TODOLAC [Concomitant]
     Active Substance: ETODOLAC
     Dosage: 300 MG, AS NEEDED MAX 2X DAILY
  5. MAGNESIA ^DAK^ [Concomitant]
     Indication: CONSTIPATION
  6. VAGIFEM [Concomitant]
     Active Substance: ESTRADIOL
     Dosage: 4 UG, 2X/DAY
  7. TOILAX [Concomitant]
     Active Substance: BISACODYL
  8. DIXARIT [Concomitant]
     Active Substance: CLONIDINE HYDROCHLORIDE
     Dosage: 25 UG, 2X/DAY
  9. KLORZOXAZON ^DAK^ [Concomitant]
     Indication: PAIN
     Dosage: 250 MG, AS NEEDED MAX 3 X DAILY
  10. PINEX [Concomitant]
     Active Substance: ACETAMINOPHEN
     Indication: PAIN
     Dosage: 1000 MG, 3X/DAY
  11. VESICARE [Concomitant]
     Active Substance: SOLIFENACIN SUCCINATE
     Dosage: 5 MG, 2X/DAY
  12. ELTROXIN [Concomitant]
     Active Substance: LEVOTHYROXINE
     Indication: MYXOEDEMA
     Dosage: 75 PG, 1X/DAY
  13. BETMIGA [Concomitant]
     Active Substance: MIRABEGRON
     Dosage: 50 MG, 1X/DAY
  14. MALFIN [Concomitant]
     Active Substance: MORPHINE SULFATE
     Indication: PAIN
  15. ZADITEN [Concomitant]
     Active Substance: KETOTIFEN FUMARATE
     Dosage: 1 DROP IN EACH EYE 2X DAILY
  16. OXYCODONE [Concomitant]
     Active Substance: OXYCODONE
     Indication: PAIN

REACTIONS (6)
  - Confusional state [Recovered/Resolved]
  - Acute psychosis [Recovered/Resolved]
  - Delusion [Recovered/Resolved]
  - Product use issue [Unknown]
  - Paranoia [Recovered/Resolved]
  - Aggression [Recovered/Resolved]

NARRATIVE: CASE EVENT DATE: 20121120
